FAERS Safety Report 4401176-2 (Version None)
Quarter: 2004Q3

REPORT INFORMATION
  Report Type: 
  Country: None (occurrence: None)
  Receive Date: 20040907
  Receipt Date: 20031203
  Transmission Date: 20050211
  Serious: Yes (Other)
  Sender: FDA-Public Use
  Company Number: US-BRISTOL-MYERS SQUIBB COMPANY-12448700

PATIENT
  Age: 64 Year
  Sex: Male
  Weight: 68 kg

DRUGS (26)
  1. COUMADIN [Suspect]
     Indication: PROPHYLAXIS
     Dosage: PRESENT DOSE 4 MG/DAY.
  2. VASOTEC [Concomitant]
  3. LOPRESSOR [Concomitant]
  4. LIPITOR [Concomitant]
  5. SOMA [Concomitant]
  6. ASPIRIN [Concomitant]
  7. FLOMAX [Concomitant]
  8. THERAGRAN-M ADVANCED [Concomitant]
  9. SELENIUM TRACE METAL ADDITIVE [Concomitant]
  10. FISH OIL [Concomitant]
  11. VITAMIN E [Concomitant]
  12. ALPHA-LIPOIC ACID [Concomitant]
  13. CALCIUM [Concomitant]
  14. ZINC [Concomitant]
  15. VITAMIN B6 [Concomitant]
  16. VITAMIN B-12 [Concomitant]
  17. FOLIC ACID [Concomitant]
  18. MAGNESIUM [Concomitant]
  19. LUTEIN [Concomitant]
  20. LECITHIN [Concomitant]
  21. LYCOPENE [Concomitant]
  22. GARLIC [Concomitant]
  23. VITAMIN C [Concomitant]
  24. CHONDROITIN + GLUCOSAMINE [Concomitant]
  25. TYLENOL [Concomitant]
  26. LEVOXYL [Concomitant]

REACTIONS (1)
  - TRANSIENT ISCHAEMIC ATTACK [None]
